FAERS Safety Report 11637411 (Version 2)
Quarter: 2015Q4

REPORT INFORMATION
  Report Type: Spontaneous
  Country: US (occurrence: US)
  Receive Date: 20151016
  Receipt Date: 20151120
  Transmission Date: 20160304
  Serious: Yes (Other)
  Sender: FDA-Public Use
  Company Number: US-SA-2015SA161586

PATIENT
  Age: 73 Year
  Sex: Female

DRUGS (3)
  1. HUMALOG [Concomitant]
     Active Substance: INSULIN LISPRO
     Dosage: ON A SLIDING SCALE WITH MEALS
  2. SOLOSTAR [Suspect]
     Active Substance: DEVICE
     Indication: TYPE 2 DIABETES MELLITUS
  3. LANTUS SOLOSTAR [Suspect]
     Active Substance: INSULIN GLARGINE
     Indication: TYPE 2 DIABETES MELLITUS
     Dosage: DOSE:25 UNIT(S)
     Route: 065

REACTIONS (4)
  - Blood glucose increased [Unknown]
  - Wheelchair user [Unknown]
  - Cerebrovascular accident [Unknown]
  - Wrong technique in product usage process [Unknown]

NARRATIVE: CASE EVENT DATE: 20151012
